FAERS Safety Report 13659443 (Version 1)
Quarter: 2017Q2

REPORT INFORMATION
  Report Type: Spontaneous
  Country: US (occurrence: US)
  Receive Date: 20170615
  Receipt Date: 20170615
  Transmission Date: 20170830
  Serious: No
  Sender: FDA-Public Use
  Company Number: None

PATIENT
  Age: 55 Year
  Sex: Female

DRUGS (1)
  1. LANANOPROST [Suspect]
     Active Substance: LATANOPROST
     Route: 047
     Dates: start: 20170527, end: 20170605

REACTIONS (2)
  - Eye irritation [None]
  - Incorrect product storage [None]

NARRATIVE: CASE EVENT DATE: 20170527
